FAERS Safety Report 11219664 (Version 1)
Quarter: 2015Q2

REPORT INFORMATION
  Report Type: Spontaneous
  Country: US (occurrence: None)
  Receive Date: 20150624
  Receipt Date: 20150624
  Transmission Date: 20150821
  Serious: Yes (Disabling)
  Sender: FDA-Public Use
  Company Number: None

PATIENT
  Age: 54 Year
  Sex: Female
  Weight: 68.04 kg

DRUGS (4)
  1. TRIAM/HCTZ [Concomitant]
  2. LANTUS SOLOSTAR INSULIN GLARGINE [Concomitant]
  3. ACTOS [Suspect]
     Active Substance: PIOGLITAZONE HYDROCHLORIDE
     Indication: TYPE 2 DIABETES MELLITUS
     Dosage: NDC 64764-301-02 AND 6476405124
     Route: 048
     Dates: start: 2010, end: 2011
  4. JENTADUETO [Concomitant]
     Active Substance: LINAGLIPTIN\METFORMIN HYDROCHLORIDE

REACTIONS (3)
  - Unevaluable event [None]
  - Vaginal haemorrhage [None]
  - Neoplasm malignant [None]

NARRATIVE: CASE EVENT DATE: 2011
